FAERS Safety Report 8287252-5 (Version None)
Quarter: 2012Q2

REPORT INFORMATION
  Report Type: 
  Country: None (occurrence: None)
  Receive Date: 20120416
  Receipt Date: 20120409
  Transmission Date: 20120825
  Serious: Yes (Hospitalization)
  Sender: FDA-Public Use
  Company Number: US-AMGEN-USASP2011060453

PATIENT
  Age: 65 Year
  Sex: Female
  Weight: 107.48 kg

DRUGS (6)
  1. PRILOSEC [Concomitant]
     Dosage: UNK
  2. K                                  /00031401/ [Concomitant]
     Dosage: UNK
  3. ENBREL [Suspect]
     Indication: RHEUMATOID ARTHRITIS
     Dosage: 50 MG, QWK
     Route: 058
     Dates: start: 20110524, end: 20110801
  4. TOPROL-XL [Concomitant]
     Dosage: UNK
  5. COUMADIN [Concomitant]
     Indication: ATRIAL FIBRILLATION
     Dosage: UNK
  6. ADVAIR DISKUS 100/50 [Concomitant]
     Dosage: UNK

REACTIONS (3)
  - DEVICE DISLOCATION [None]
  - CELLULITIS [None]
  - ABSCESS LIMB [None]
